FAERS Safety Report 17564394 (Version 1)
Quarter: 2020Q1

REPORT INFORMATION
  Report Type: Report from Study
  Country: US (occurrence: US)
  Receive Date: 20200320
  Receipt Date: 20200320
  Transmission Date: 20200409
  Serious: Yes (Hospitalization, Other)
  Sender: FDA-Public Use
  Company Number: US-B.I. PHARMACEUTICALS,INC./RIDGEFIELD-2020-BI-007648

PATIENT
  Sex: Male

DRUGS (1)
  1. OFEV [Suspect]
     Active Substance: NINTEDANIB
     Indication: HYPOTHYROIDISM
     Dosage: TAKE 1 TABLET BY MOUTH TWICE A DAY 12 HOURS APART WITH FOOD
     Route: 048

REACTIONS (2)
  - Drug interaction [Unknown]
  - Pneumonia [Recovered/Resolved]
